FAERS Safety Report 17465109 (Version 1)
Quarter: 2020Q1

REPORT INFORMATION
  Report Type: Report from Study
  Country: US (occurrence: US)
  Receive Date: 20200226
  Receipt Date: 20200226
  Transmission Date: 20200409
  Serious: Yes (Death)
  Sender: FDA-Public Use
  Company Number: US-EXELIXIS-CABO-20027170

PATIENT
  Age: 59 Year
  Sex: Male

DRUGS (1)
  1. CABOMETYX [Suspect]
     Active Substance: CABOZANTINIB S-MALATE
     Indication: HEPATOCELLULAR CARCINOMA
     Dosage: 60 MG, QD
     Route: 048
     Dates: start: 20190709

REACTIONS (5)
  - Balance disorder [Unknown]
  - Dizziness [Unknown]
  - Memory impairment [Unknown]
  - Death [Fatal]
  - Muscle twitching [Unknown]

NARRATIVE: CASE EVENT DATE: 20200213
